FAERS Safety Report 5914930-2 (Version None)
Quarter: 2008Q4

REPORT INFORMATION
  Report Type: 
  Country: None (occurrence: None)
  Receive Date: 20081010
  Receipt Date: 20081002
  Transmission Date: 20090506
  Serious: Yes (Death, Other)
  Sender: FDA-Public Use
  Company Number: US-ELI_LILLY_AND_COMPANY-US200810000724

PATIENT
  Age: 89 Year
  Sex: Female
  Weight: 49 kg

DRUGS (9)
  1. XIGRIS [Suspect]
     Indication: SEPSIS
     Dates: start: 20080923, end: 20080924
  2. VANCOMYCIN HCL [Concomitant]
     Dosage: 125 MG, 4/D
     Route: 048
     Dates: start: 20080922
  3. FLAGYL [Concomitant]
     Dosage: 500 MG, OTHER
     Route: 042
     Dates: start: 20080922
  4. HEPARIN [Concomitant]
     Dosage: 5000 D/F, EVERY 8 HRS
     Route: 058
  5. ASPIRIN [Concomitant]
  6. DOBUTAMINE HCL [Concomitant]
  7. PROTONIX [Concomitant]
  8. FENTANYL [Concomitant]
  9. VERSED [Concomitant]

REACTIONS (2)
  - DEATH [None]
  - RECTAL HAEMORRHAGE [None]
